FAERS Safety Report 6227197-5 (Version None)
Quarter: 2009Q2

REPORT INFORMATION
  Report Type: 
  Country: None (occurrence: None)
  Receive Date: 20090612
  Receipt Date: 20090610
  Transmission Date: 20091009
  Serious: Yes (Hospitalization)
  Sender: FDA-Public Use
  Company Number: FR-TEVA-196005ISR

PATIENT
  Age: 35 Year
  Sex: Male

DRUGS (1)
  1. ZOLPIDEM TARTRATE [Suspect]

REACTIONS (3)
  - DRUG ABUSE [None]
  - INTENTIONAL DRUG MISUSE [None]
  - ISCHAEMIA [None]
